FAERS Safety Report 14406959 (Version 1)
Quarter: 2018Q1

REPORT INFORMATION
  Report Type: Spontaneous
  Country: US (occurrence: US)
  Receive Date: 20180118
  Receipt Date: 20180118
  Transmission Date: 20180509
  Serious: Yes (Other)
  Sender: FDA-Public Use
  Company Number: US-TEVA-2018-US-846813

PATIENT
  Age: 28 Year
  Sex: Male

DRUGS (15)
  1. BEDAQUILINE [Concomitant]
     Active Substance: BEDAQUILINE
     Indication: TUBERCULOSIS
  2. CAPREOMYCIN [Concomitant]
     Active Substance: CAPREOMYCIN
     Indication: TUBERCULOMA OF CENTRAL NERVOUS SYSTEM
     Dosage: 1000 MG DAILY
     Route: 042
  3. DEXAMETHASONE. [Suspect]
     Active Substance: DEXAMETHASONE
     Indication: TUBERCULOMA OF CENTRAL NERVOUS SYSTEM
     Route: 048
  4. MEROPENEM. [Concomitant]
     Active Substance: MEROPENEM
     Indication: TUBERCULOSIS
  5. DEXAMETHASONE. [Suspect]
     Active Substance: DEXAMETHASONE
     Indication: TUBERCULOSIS
     Dosage: 1 MG EVERY OTHER DAY
     Route: 048
  6. DEXAMETHASONE. [Suspect]
     Active Substance: DEXAMETHASONE
     Dosage: 1 MG DAILY
     Route: 048
  7. MOXIFLOXACIN. [Concomitant]
     Active Substance: MOXIFLOXACIN
     Indication: TUBERCULOMA OF CENTRAL NERVOUS SYSTEM
     Dosage: 400 MG DAILY
     Route: 048
  8. BEDAQUILINE [Concomitant]
     Active Substance: BEDAQUILINE
     Indication: TUBERCULOMA OF CENTRAL NERVOUS SYSTEM
     Dosage: LOADING DOSE 400 MG DAILY FOR 14 DAYS, THEN 200 MG ORALLY THREE TIMES PER WEEK
     Route: 048
  9. MOXIFLOXACIN. [Concomitant]
     Active Substance: MOXIFLOXACIN
     Indication: TUBERCULOSIS
  10. CAPREOMYCIN [Concomitant]
     Active Substance: CAPREOMYCIN
     Indication: TUBERCULOSIS
  11. MEROPENEM. [Concomitant]
     Active Substance: MEROPENEM
     Indication: TUBERCULOMA OF CENTRAL NERVOUS SYSTEM
     Dosage: 2G, EVERY 8 HOURS
     Route: 042
  12. LINEZOLID. [Suspect]
     Active Substance: LINEZOLID
     Indication: TUBERCULOMA OF CENTRAL NERVOUS SYSTEM
     Dosage: 600 MILLIGRAM DAILY; 600 MG DAILY
     Route: 048
  13. LINEZOLID. [Suspect]
     Active Substance: LINEZOLID
     Indication: TUBERCULOSIS
  14. AMOXICILLIN W/CLAVULANIC ACID [Concomitant]
     Active Substance: AMOXICILLIN\CLAVULANIC ACID
     Indication: TUBERCULOSIS
  15. AMOXICILLIN W/CLAVULANIC ACID [Concomitant]
     Active Substance: AMOXICILLIN\CLAVULANIC ACID
     Indication: TUBERCULOMA OF CENTRAL NERVOUS SYSTEM
     Dosage: 500 MG/125 MG EVERY EIGHT HOURS
     Route: 048

REACTIONS (1)
  - Neuropathy peripheral [Unknown]
